FAERS Safety Report 15564736 (Version 1)
Quarter: 2018Q4

REPORT INFORMATION
  Report Type: Spontaneous
  Country: US (occurrence: US)
  Receive Date: 20181030
  Receipt Date: 20181030
  Transmission Date: 20190205
  Serious: No
  Sender: FDA-Public Use
  Company Number: US-PFIZER INC-2018433175

PATIENT
  Age: 63 Year
  Sex: Male
  Weight: 61.23 kg

DRUGS (9)
  1. VENLAFAXINE [Concomitant]
     Active Substance: VENLAFAXINE HYDROCHLORIDE
     Indication: DEPRESSION
     Dosage: 150 MG, 1X/DAY
     Route: 048
     Dates: start: 2017
  2. PRAZOSIN. [Concomitant]
     Active Substance: PRAZOSIN
     Indication: NIGHTMARE
     Dosage: 5 MG, 1X/DAY; [AT NIGHT]
     Route: 048
     Dates: start: 2018
  3. CYCLOBENZAPRINE. [Concomitant]
     Active Substance: CYCLOBENZAPRINE
     Indication: MUSCLE RELAXANT THERAPY
     Dosage: 10 MG, 3X/DAY
     Route: 048
     Dates: start: 2018
  4. ALPRAZOLAM. [Concomitant]
     Active Substance: ALPRAZOLAM
     Indication: ANXIETY
     Dosage: 0.5 MG, 2X/DAY
     Route: 048
     Dates: start: 2018
  5. TYLENOL PM [Concomitant]
     Active Substance: ACETAMINOPHEN\DIPHENHYDRAMINE
     Indication: PAIN
     Dosage: 1000 MG, 1X/DAY; [IN THE EVENING]
     Route: 048
     Dates: start: 2014
  6. HYDROXYCHLOROQUINE [Concomitant]
     Active Substance: HYDROXYCHLOROQUINE
     Indication: RHEUMATOID ARTHRITIS
     Dosage: 200 MG, 2X/DAY
     Route: 048
     Dates: start: 2018
  7. IBUPROFEN. [Concomitant]
     Active Substance: IBUPROFEN
     Indication: PAIN
     Dosage: 800 MG, 1X/DAY
     Route: 048
     Dates: start: 2017
  8. LYRICA [Suspect]
     Active Substance: PREGABALIN
     Indication: SCIATIC NERVE NEUROPATHY
     Dosage: 50 MG, 2X/DAY
     Route: 048
     Dates: start: 2016, end: 2018
  9. TYLENOL [Concomitant]
     Active Substance: ACETAMINOPHEN
     Indication: PAIN
     Dosage: 1000 MG, 1X/DAY; (IN THE MORNING)
     Route: 048
     Dates: start: 2014

REACTIONS (3)
  - Tinnitus [Recovering/Resolving]
  - Paraesthesia [Recovering/Resolving]
  - Withdrawal syndrome [Recovering/Resolving]

NARRATIVE: CASE EVENT DATE: 201808
